FAERS Safety Report 8034215-0 (Version None)
Quarter: 2012Q1

REPORT INFORMATION
  Report Type: 
  Country: None (occurrence: None)
  Receive Date: 20120110
  Receipt Date: 20120105
  Transmission Date: 20120608
  Serious: Yes (Other)
  Sender: FDA-Public Use
  Company Number: CA-JNJFOC-20120102512

PATIENT
  Sex: Female

DRUGS (1)
  1. NICOTINE [Suspect]
     Indication: PRODUCT USED FOR UNKNOWN INDICATION
     Route: 048

REACTIONS (4)
  - DEPENDENCE [None]
  - DISEASE PROGRESSION [None]
  - HEART RATE INCREASED [None]
  - PRODUCT QUALITY ISSUE [None]
